FAERS Safety Report 25597159 (Version 1)
Quarter: 2025Q3

REPORT INFORMATION
  Report Type: Spontaneous
  Country: US (occurrence: US)
  Receive Date: 20250723
  Receipt Date: 20250723
  Transmission Date: 20251021
  Serious: No
  Sender: PROGENICS PHARMACEUTICALS
  Company Number: US-LANTHEUS MEDICAL IMAGING-LMI-2025-00031

PATIENT
  Age: 72 Year
  Sex: Male
  Weight: 99 kg

DRUGS (1)
  1. PYLARIFY [Suspect]
     Active Substance: PIFLUFOLASTAT F-18
     Indication: Scan
     Dates: start: 20250108, end: 20250108

REACTIONS (1)
  - Radioisotope scan abnormal [Unknown]

NARRATIVE: CASE EVENT DATE: 20250108
